FAERS Safety Report 8607301-1 (Version None)
Quarter: 2012Q3

REPORT INFORMATION
  Report Type: 
  Country: None (occurrence: None)
  Receive Date: 20120807
  Receipt Date: 20120726
  Transmission Date: 20120928
  Serious: Yes (Other)
  Sender: FDA-Public Use
  Company Number: 1364706

PATIENT
  Age: 81 Year
  Sex: Male
  Weight: 29.4838 kg

DRUGS (10)
  1. QUININE SULFATE [Concomitant]
  2. ASPIRIN [Concomitant]
  3. METRONIDAZOLE [Concomitant]
  4. SIMVASTATIN [Concomitant]
  5. FELODIPINE [Concomitant]
  6. (MEBEVERINE) [Concomitant]
  7. (DOMPERIDONE) [Concomitant]
  8. GENTAMICIN SULFATE [Suspect]
     Indication: ANTIBIOTIC PROPHYLAXIS
     Dosage: 200 MG MILLIGRAM(S), INTRAVENOUS (NOT OTHERWISE SPECIFIED)
     Route: 042
  9. OMEPRAZOLE [Concomitant]
  10. PIROXICAM [Suspect]
     Indication: ANALGESIC THERAPY
     Dosage: 20 MG MILLIGRAM(S), ORAL
     Route: 048
     Dates: start: 20120502, end: 20120507

REACTIONS (1)
  - RENAL FAILURE ACUTE [None]
